FAERS Safety Report 18343851 (Version 1)
Quarter: 2020Q4

REPORT INFORMATION
  Report Type: Spontaneous
  Country: US (occurrence: US)
  Receive Date: 20201004
  Receipt Date: 20201004
  Transmission Date: 20210114
  Serious: Yes (Other)
  Sender: FDA-Public Use
  Company Number: None

PATIENT
  Age: 44 Year
  Sex: Female
  Weight: 74.84 kg

DRUGS (2)
  1. TRIPLE ANTIBIOTIC (BACITRACIN ZINC\NEOMYCIN SULFATE\POLYMYXIN B SULFATE) [Suspect]
     Active Substance: BACITRACIN ZINC\NEOMYCIN SULFATE\POLYMYXIN B SULFATE
     Indication: SKIN INFECTION
     Route: 061
  2. TRIPLE ANTIBIOTIC (BACITRACIN ZINC\NEOMYCIN SULFATE\POLYMYXIN B SULFATE) [Concomitant]
     Active Substance: BACITRACIN ZINC\NEOMYCIN SULFATE\POLYMYXIN B SULFATE
     Dates: start: 20201004, end: 20201004

REACTIONS (1)
  - Headache [None]

NARRATIVE: CASE EVENT DATE: 20201004
